FAERS Safety Report 20752822 (Version 1)
Quarter: 2022Q2

REPORT INFORMATION
  Report Type: Spontaneous
  Country: US (occurrence: None)
  Receive Date: 20220426
  Receipt Date: 20220426
  Transmission Date: 20220721
  Serious: No
  Sender: FDA-Public Use
  Company Number: US-ROCHE-2898406

PATIENT
  Sex: Male

DRUGS (14)
  1. ESBRIET [Suspect]
     Active Substance: PIRFENIDONE
     Indication: Idiopathic pulmonary fibrosis
     Route: 048
     Dates: start: 20210630
  2. ESBRIET [Suspect]
     Active Substance: PIRFENIDONE
     Route: 048
  3. ESBRIET [Suspect]
     Active Substance: PIRFENIDONE
     Route: 048
  4. ESBRIET [Suspect]
     Active Substance: PIRFENIDONE
     Route: 048
  5. ALLOPURINOL [Concomitant]
     Active Substance: ALLOPURINOL
  6. BUMETANIDE [Concomitant]
     Active Substance: BUMETANIDE
  7. CARVEDILOL [Concomitant]
     Active Substance: CARVEDILOL
  8. ISOSORBIDE MONONITRATE [Concomitant]
     Active Substance: ISOSORBIDE MONONITRATE
  9. LABETALOL HYDROCHLORIDE [Concomitant]
     Active Substance: LABETALOL HYDROCHLORIDE
  10. LOVASTATIN [Concomitant]
     Active Substance: LOVASTATIN
  11. MINOXIDIL [Concomitant]
     Active Substance: MINOXIDIL
  12. OMEPRAZOLE [Concomitant]
     Active Substance: OMEPRAZOLE
  13. PACERONE [Concomitant]
     Active Substance: AMIODARONE HYDROCHLORIDE
  14. CHOLECALCIFEROL [Concomitant]
     Active Substance: CHOLECALCIFEROL

REACTIONS (1)
  - Abdominal discomfort [Recovered/Resolved]
